FAERS Safety Report 18678792 (Version 7)
Quarter: 2021Q4

REPORT INFORMATION
  Report Type: Spontaneous
  Country: JP (occurrence: JP)
  Receive Date: 20201229
  Receipt Date: 20211230
  Transmission Date: 20220303
  Serious: Yes (Death, Other)
  Sender: FDA-Public Use
  Company Number: JP-PFIZER INC-2020511758

PATIENT
  Age: 78 Year
  Sex: Female
  Weight: 36 kg

DRUGS (11)
  1. MEROPENEM [Suspect]
     Active Substance: MEROPENEM
     Indication: Pyonephrosis
     Dosage: 0.5 G, DAILY
     Route: 041
     Dates: start: 201511
  2. MEROPENEM [Suspect]
     Active Substance: MEROPENEM
     Dosage: 0.5 G, DAILY
     Route: 041
     Dates: start: 201908
  3. POLAPREZINC [Concomitant]
     Active Substance: POLAPREZINC
     Dosage: UNK
     Route: 048
  4. CLOPIDOGREL [Concomitant]
     Active Substance: CLOPIDOGREL BISULFATE
     Dosage: UNK
     Route: 048
  5. VONOPRAZAN FUMARATE [Concomitant]
     Active Substance: VONOPRAZAN FUMARATE
     Dosage: UNK
     Route: 048
  6. NITRAZEPAM [Concomitant]
     Active Substance: NITRAZEPAM
     Dosage: UNK
     Route: 048
  7. CELECOXIB [Concomitant]
     Active Substance: CELECOXIB
     Dosage: UNK
     Route: 048
  8. LINZESS [Concomitant]
     Active Substance: LINACLOTIDE
     Dosage: UNK
     Route: 048
  9. PAROXETINE [Concomitant]
     Active Substance: PAROXETINE
     Dosage: UNK
     Route: 048
  10. MIANSERIN [Concomitant]
     Active Substance: MIANSERIN
     Dosage: UNK
     Route: 048
  11. PREDNISOLONE [Concomitant]
     Active Substance: PREDNISOLONE
     Indication: Vertigo positional
     Dosage: 0.5 MG, ALTERNATE DAY
     Route: 048

REACTIONS (2)
  - Toxic epidermal necrolysis [Fatal]
  - Drug eruption [Fatal]
